FAERS Safety Report 16344367 (Version 4)
Quarter: 2019Q3

REPORT INFORMATION
  Report Type: Spontaneous
  Country: US (occurrence: US)
  Receive Date: 20190522
  Receipt Date: 20190826
  Transmission Date: 20191004
  Serious: Yes (Hospitalization, Other)
  Sender: FDA-Public Use
  Company Number: US-PFIZER INC-2019212798

PATIENT
  Age: 77 Year
  Sex: Female
  Weight: 70 kg

DRUGS (9)
  1. SIMVASTATIN. [Concomitant]
     Active Substance: SIMVASTATIN
     Indication: BLOOD CHOLESTEROL ABNORMAL
     Dosage: UNK, 1X/DAY (ONCE AT NIGHT, BY MOUTH BUT IT IS NOT MUCH, LIKE 10 MG OR 20 MG)
     Route: 048
  2. FLECTOR [Suspect]
     Active Substance: DICLOFENAC EPOLAMINE
     Dosage: 2 DF, DAILY ,(TWO PATCHES TO HER BACK EACH DAY)
     Route: 062
  3. NORVASC [Concomitant]
     Active Substance: AMLODIPINE BESYLATE
     Indication: BLOOD PRESSURE ABNORMAL
     Dosage: 5 MG, 1X/DAY (AT NIGHT)
     Route: 048
  4. FLECTOR [Suspect]
     Active Substance: DICLOFENAC EPOLAMINE
     Indication: MUSCULOSKELETAL PAIN
     Dosage: 1 DF, 2X/DAY (1.3%, USE 1 PATCH TWICE A DAY)
  5. LISINOPRIL. [Concomitant]
     Active Substance: LISINOPRIL
     Indication: BLOOD PRESSURE ABNORMAL
     Dosage: 20 MG, 1X/DAY (ONCE IN MORNING)
     Route: 048
  6. FLECTOR [Suspect]
     Active Substance: DICLOFENAC EPOLAMINE
     Indication: BACK PAIN
     Dosage: 1 DF, 1X/DAY
     Dates: start: 201904, end: 20190515
  7. ATENOLOL. [Concomitant]
     Active Substance: ATENOLOL
     Indication: BLOOD PRESSURE ABNORMAL
     Dosage: UNK, 1X/DAY (DOSE UNKNOWN TO REPORTER IN THE MORNING, BY MOUTH)
     Route: 048
  8. OMEPRAZOLE. [Concomitant]
     Active Substance: OMEPRAZOLE
     Indication: GASTROOESOPHAGEAL REFLUX DISEASE
     Dosage: UNK UNK, 1X/DAY [DOSE UNKNOWN TO REPORTER]
     Route: 048
  9. IRON [Concomitant]
     Active Substance: IRON
     Indication: ANAEMIA
     Dosage: UNK UNK, 1X/DAY(1 A DAY BY MOUTH, DOSE UNKNOWN TO REPORTER)
     Route: 048

REACTIONS (11)
  - Fall [Recovering/Resolving]
  - Loss of personal independence in daily activities [Unknown]
  - Intervertebral disc protrusion [Unknown]
  - Thrombosis [Unknown]
  - Intentional product use issue [Unknown]
  - Agitation [Unknown]
  - Spinal deformity [Unknown]
  - Head injury [Unknown]
  - Spinal stenosis [Unknown]
  - Spinal fracture [Unknown]
  - Neck injury [Unknown]

NARRATIVE: CASE EVENT DATE: 20190312
